FAERS Safety Report 22179997 (Version 7)
Quarter: 2023Q2

REPORT INFORMATION
  Report Type: Report from Study
  Country: TR (occurrence: None)
  Receive Date: 20230406
  Receipt Date: 20230606
  Transmission Date: 20230721
  Serious: Yes (Death, Hospitalization)
  Sender: FDA-Public Use
  Company Number: TR-ROCHE-3317619

PATIENT
  Age: 57 Year
  Sex: Male
  Weight: 70 kg

DRUGS (39)
  1. ATEZOLIZUMAB [Suspect]
     Active Substance: ATEZOLIZUMAB
     Indication: Small cell lung cancer extensive stage
     Dosage: ON 14/MAR/2023, 18/APR/2023 RECEIVED THE MOST RECENT DOSE OF 1200 MG ATEZOLIZUMAB PRIOR TO AE AND SA
     Route: 041
     Dates: start: 20221117
  2. LURBINECTEDIN [Suspect]
     Active Substance: LURBINECTEDIN
     Indication: Small cell lung cancer extensive stage
     Dosage: ON 14/MAR/2023, 18/APR/2023RECEIVED THE MOST RECENT DOSE OF  4.6 MG LURBINECTEDIN ADMIN PRIOR SAE.
     Route: 042
     Dates: start: 20230223
  3. ETOPOSIDE [Suspect]
     Active Substance: ETOPOSIDE
     Indication: Small cell lung cancer extensive stage
     Dosage: ON 03/FEB/2023, START DATE OF MOST RECENT DOSE OF STUDY DRUG PRIOR TO AE/ SAE IS 183 MG
     Route: 042
     Dates: start: 20221117
  4. CARBOPLATIN [Suspect]
     Active Substance: CARBOPLATIN
     Indication: Small cell lung cancer extensive stage
     Dosage: ON 01/FEB/2023, START DATE OF MOST RECENT DOSE OF STUDY DRUG PRIOR TO AE/ SAE IS 682.9 MG
     Route: 042
     Dates: start: 20221117
  5. NORVASC [Concomitant]
     Active Substance: AMLODIPINE BESYLATE
     Indication: Hypertension
     Dates: start: 20221116
  6. GRANEXA [Concomitant]
     Dates: start: 20221121
  7. PANTOPRAZOLE [Concomitant]
     Active Substance: PANTOPRAZOLE
     Dates: start: 20221221
  8. CALCIMAX D3 [CALCIUM CARBONATE;COLECALCIFEROL] [Concomitant]
     Dates: start: 20221214
  9. METHYLPREDNISOLONE [Concomitant]
     Active Substance: METHYLPREDNISOLONE
     Route: 048
     Dates: start: 20221228
  10. LEVEMIR [Concomitant]
     Active Substance: INSULIN DETEMIR
     Indication: Hyperglycaemia
     Dates: start: 20230116, end: 20230221
  11. NOVORAPID [Concomitant]
     Active Substance: INSULIN ASPART
     Indication: Hyperglycaemia
     Dates: start: 20230116, end: 20230221
  12. HUMAN RED BLOOD CELL [Concomitant]
     Active Substance: HUMAN RED BLOOD CELL
     Indication: Anaemia
     Dosage: ERYTHROCYTE SUSPENSION
     Dates: start: 20230221, end: 20230221
  13. HUMAN RED BLOOD CELL [Concomitant]
     Active Substance: HUMAN RED BLOOD CELL
     Dates: start: 20230331, end: 20230331
  14. HUMAN RED BLOOD CELL [Concomitant]
     Active Substance: HUMAN RED BLOOD CELL
     Dates: start: 20230428, end: 20230428
  15. HUMAN RED BLOOD CELL [Concomitant]
     Active Substance: HUMAN RED BLOOD CELL
     Dates: start: 20230430, end: 20230430
  16. HUMAN RED BLOOD CELL [Concomitant]
     Active Substance: HUMAN RED BLOOD CELL
     Dates: start: 20230503, end: 20230503
  17. HUMAN RED BLOOD CELL [Concomitant]
     Active Substance: HUMAN RED BLOOD CELL
     Dates: start: 20230505, end: 20230505
  18. HUMAN RED BLOOD CELL [Concomitant]
     Active Substance: HUMAN RED BLOOD CELL
     Dates: start: 20230509, end: 20230510
  19. HUMAN RED BLOOD CELL [Concomitant]
     Active Substance: HUMAN RED BLOOD CELL
     Dates: start: 20230513, end: 20230513
  20. HUMAN RED BLOOD CELL [Concomitant]
     Active Substance: HUMAN RED BLOOD CELL
     Dates: start: 20230517, end: 20230517
  21. DEXAMETHASONE [Concomitant]
     Active Substance: DEXAMETHASONE
     Route: 042
     Dates: start: 20230223, end: 20230223
  22. DEXAMETHASONE [Concomitant]
     Active Substance: DEXAMETHASONE
     Route: 042
     Dates: start: 20230314, end: 20230314
  23. DEXAMETHASONE [Concomitant]
     Active Substance: DEXAMETHASONE
     Route: 042
     Dates: start: 20230418, end: 20230418
  24. ONDANSETRON HYDROCHLORIDE [Concomitant]
     Active Substance: ONDANSETRON HYDROCHLORIDE
     Route: 065
     Dates: start: 20230223, end: 20230223
  25. ONDANSETRON HYDROCHLORIDE [Concomitant]
     Active Substance: ONDANSETRON HYDROCHLORIDE
     Route: 065
     Dates: start: 20230314, end: 20230314
  26. ONDANSETRON HYDROCHLORIDE [Concomitant]
     Active Substance: ONDANSETRON HYDROCHLORIDE
     Dates: start: 20230418, end: 20230418
  27. PHENIRAMINE [Concomitant]
     Active Substance: PHENIRAMINE
     Route: 065
     Dates: start: 20230223, end: 20230223
  28. PHENIRAMINE [Concomitant]
     Active Substance: PHENIRAMINE
     Route: 065
     Dates: start: 20230314, end: 20230314
  29. PHENIRAMINE [Concomitant]
     Active Substance: PHENIRAMINE
     Dates: start: 20230418, end: 20230418
  30. FRAVEN [Concomitant]
     Route: 058
     Dates: start: 20230225, end: 20230301
  31. FRAVEN [Concomitant]
     Route: 058
     Dates: start: 20230316, end: 20230320
  32. FRAVEN [Concomitant]
     Route: 058
     Dates: start: 20230324, end: 20230403
  33. ISOTONIC SODIUM CHLORIDE SOLUTION [Concomitant]
     Active Substance: SODIUM CHLORIDE
     Dates: start: 20230323, end: 20230326
  34. ISOTONIC SODIUM CHLORIDE SOLUTION [Concomitant]
     Active Substance: SODIUM CHLORIDE
     Dates: start: 20230329, end: 20230402
  35. ISOTONIC SODIUM CHLORIDE SOLUTION [Concomitant]
     Active Substance: SODIUM CHLORIDE
     Dates: start: 20230426, end: 20230426
  36. ISOTONIC SODIUM CHLORIDE SOLUTION [Concomitant]
     Active Substance: SODIUM CHLORIDE
     Dates: start: 20230428, end: 20230501
  37. ISOTONIC SODIUM CHLORIDE SOLUTION [Concomitant]
     Active Substance: SODIUM CHLORIDE
     Dates: start: 20230505, end: 20230509
  38. ISOTONIC SODIUM CHLORIDE SOLUTION [Concomitant]
     Active Substance: SODIUM CHLORIDE
     Dates: start: 20230511, end: 20230517
  39. DEXTROSE [Concomitant]
     Active Substance: DEXTROSE\DEXTROSE MONOHYDRATE
     Dates: start: 20230514, end: 20230516

REACTIONS (9)
  - Pulmonary embolism [Not Recovered/Not Resolved]
  - Platelet count decreased [Not Recovered/Not Resolved]
  - Neutrophil count decreased [Recovered/Resolved]
  - White blood cell count decreased [Not Recovered/Not Resolved]
  - Lymphocyte count decreased [Not Recovered/Not Resolved]
  - Blood bilirubin increased [Not Recovered/Not Resolved]
  - Febrile neutropenia [Fatal]
  - Alkalosis [Recovered/Resolved]
  - Acidosis [Not Recovered/Not Resolved]

NARRATIVE: CASE EVENT DATE: 20230306
